FAERS Safety Report 4553464-7 (Version None)
Quarter: 2005Q1

REPORT INFORMATION
  Report Type: 
  Country: None (occurrence: None)
  Receive Date: 20050112
  Receipt Date: 20041222
  Transmission Date: 20050727
  Serious: Yes (Hospitalization)
  Sender: FDA-Public Use
  Company Number: EWC041241990

PATIENT
  Age: 80 Year
  Sex: Female

DRUGS (1)
  1. FORTEO [Suspect]
     Indication: OSTEOPOROSIS
     Dates: start: 20040813, end: 20041201

REACTIONS (4)
  - ASTHENIA [None]
  - DRUG HYPERSENSITIVITY [None]
  - PYREXIA [None]
  - RASH GENERALISED [None]
